FAERS Safety Report 9298371 (Version 1)
Quarter: 2013Q2

REPORT INFORMATION
  Report Type: Spontaneous
  Country: CA (occurrence: CA)
  Receive Date: 20130520
  Receipt Date: 20130520
  Transmission Date: 20140414
  Serious: Yes (Other)
  Sender: FDA-Public Use
  Company Number: CA-AMGEN-CANSP2013034338

PATIENT
  Age: 67 Year
  Sex: Female
  Weight: 71.82 kg

DRUGS (1)
  1. PROLIA [Suspect]
     Indication: OSTEOPOROSIS POSTMENOPAUSAL
     Dosage: 60 MG, UNK
     Dates: start: 20120324

REACTIONS (2)
  - Cystitis noninfective [Unknown]
  - Ear infection [Recovered/Resolved]
